FAERS Safety Report 9518386 (Version 5)
Quarter: 2014Q2

REPORT INFORMATION
  Report Type: Report from Study
  Country: CA (occurrence: CA)
  Receive Date: 20130912
  Receipt Date: 20140415
  Transmission Date: 20141212
  Serious: Yes (Other)
  Sender: FDA-Public Use
  Company Number: CA-ROCHE-1272173

PATIENT
  Age: 33 Year
  Sex: Female
  Weight: 67 kg

DRUGS (11)
  1. ACTEMRA [Suspect]
     Indication: RHEUMATOID ARTHRITIS
     Route: 042
     Dates: start: 20130807
  2. ACTEMRA [Suspect]
     Route: 042
     Dates: start: 20130904
  3. ARAVA [Concomitant]
  4. NEXIUM [Concomitant]
  5. NORVASC [Concomitant]
  6. REMERON [Concomitant]
  7. CELEBREX [Concomitant]
  8. TYLENOL #3 (ACETAMINOPHEN/CODEINE) [Concomitant]
  9. CYMBALTA [Concomitant]
  10. BENADRYL (CANADA) [Concomitant]
  11. TRAZODONE [Concomitant]

REACTIONS (6)
  - Heart rate increased [Unknown]
  - Blood pressure increased [Unknown]
  - Wound infection [Not Recovered/Not Resolved]
  - Throat irritation [Recovered/Resolved]
  - Malaise [Unknown]
  - Wound [Unknown]
